FAERS Safety Report 9648437 (Version 4)
Quarter: 2014Q1

REPORT INFORMATION
  Report Type: Spontaneous
  Country: US (occurrence: None)
  Receive Date: 20131024
  Receipt Date: 20140221
  Transmission Date: 20141002
  Serious: Yes (Hospitalization, Other)
  Sender: FDA-Public Use
  Company Number: 2013-000479

PATIENT
  Age: 88 Year
  Sex: Female
  Weight: 86.2 kg

DRUGS (32)
  1. ACTONEL [Suspect]
     Indication: OSTEOPOROSIS
     Dosage: 150 MG ONCE MONTHLY, ORAL
     Route: 048
     Dates: start: 20080811, end: 2011
  2. ACTONEL [Suspect]
     Indication: OSTEOPOROSIS PROPHYLAXIS
     Dosage: 150 MG ONCE MONTHLY, ORAL
     Route: 048
     Dates: start: 20080811, end: 2011
  3. FOSAMAX (ALENDRONATE SODIUM) [Suspect]
     Indication: OSTEOPOROSIS
     Dosage: 70 MG ONCE WEEKLY, ORAL
     Route: 048
     Dates: start: 20060111, end: 20080128
  4. FOSAMAX (ALENDRONATE SODIUM) [Suspect]
     Indication: OSTEOPOROSIS PROPHYLAXIS
     Dosage: 70 MG ONCE WEEKLY, ORAL
     Route: 048
     Dates: start: 20060111, end: 20080128
  5. AMLODIPINE (AMLODIPINE) [Concomitant]
  6. METOPROLOL (METOPROLOL) [Concomitant]
  7. BENICAR (OLMESARTAN MEDOXOMIL) [Concomitant]
  8. NITROLINGUAL-PUMPSPRAY (GLYCERYL TRINITRATE) [Concomitant]
  9. VYTORIN (EZETIMIBE, SIMVASTATIN) [Concomitant]
  10. FUROSEMIDE (FUROSEMIDE) [Concomitant]
  11. KLOR-CON M 10 (POTASSIUM CHLORIDE) [Concomitant]
  12. BABY ASPIRIN (ACETYLSALICYLIC ACID) [Concomitant]
  13. PLAVIX (CLOPIDOGREL BISULFATE) [Concomitant]
  14. LYRICA (PREGABALIN) [Concomitant]
  15. TRAMADOL (TRAMADOL) [Concomitant]
  16. PREAVACID (LANSOPRAZOLE) [Concomitant]
  17. COLACE (DOCUSATE SODIUIM) [Concomitant]
  18. FLOVENT (FLUTICASONE PROPIONATE) [Concomitant]
  19. PROAIR HFA (SALBUTAMOL SULFATE) [Concomitant]
  20. SPIRIVA HANDIHALER (TIOTROPIUM BROMIDE) [Concomitant]
  21. ACULAR (KETOROLAC TROMETHAMINE) [Concomitant]
  22. TRISOPT (DORZOLAMIDE HYDROCHLORIDE) [Concomitant]
  23. XALATAN (LATANOPROST) [Concomitant]
  24. GINKO BILOBA (GINKGO BILOBA) [Concomitant]
  25. FISH OIL (FISH OIL) [Concomitant]
  26. GLUCOSAMINE (GLUCOSAMINE) [Concomitant]
  27. CO Q10 (UBIDECARENONE) [Concomitant]
  28. FOLBEE (CYANOCOBALAMIN, FOLIC ACID, PYRIDOXINE HYDROCHLORIDE) [Concomitant]
  29. VITAMIN B12 /00056201/  (CYANOCOBALAMIN) [Concomitant]
  30. VITAMIN C /00008001/  (ASCORBIC ACID) [Concomitant]
  31. CENTRUM /00554501/  (MINERALS NOS, VITAMINS NOS) [Concomitant]
  32. CALCIUM WITH VITAMIN D /00944201/ (CALCIUM CARBONATE, COLECALCIFEROL) [Concomitant]

REACTIONS (9)
  - Femur fracture [None]
  - Fall [None]
  - Fracture displacement [None]
  - Fracture delayed union [None]
  - Pathological fracture [None]
  - Bone disorder [None]
  - Stress fracture [None]
  - Pain [None]
  - Low turnover osteopathy [None]
